FAERS Safety Report 19292578 (Version 2)
Quarter: 2022Q1

REPORT INFORMATION
  Report Type: Report from Study
  Country: JP (occurrence: JP)
  Receive Date: 20210524
  Receipt Date: 20220317
  Transmission Date: 20220423
  Serious: Yes (Death, Hospitalization)
  Sender: FDA-Public Use
  Company Number: JP-CELLTRION INC.-2020JP021943

PATIENT

DRUGS (30)
  1. INVESTIGATIONAL BIOSIMILARS [Suspect]
     Active Substance: INVESTIGATIONAL BIOSIMILARS
     Indication: HER2 positive gastric cancer
     Dosage: 440 MG, QD (EVERY ADMINISTRATION DATE)
     Route: 041
     Dates: start: 20191218, end: 20191218
  2. INVESTIGATIONAL BIOSIMILARS [Suspect]
     Active Substance: INVESTIGATIONAL BIOSIMILARS
     Dosage: 330 MG, QD (EVERY ADMINISTRATION DATE)
     Route: 041
     Dates: start: 20200109, end: 20200109
  3. INVESTIGATIONAL BIOSIMILARS [Suspect]
     Active Substance: INVESTIGATIONAL BIOSIMILARS
     Dosage: 330 MG, QD (EVERY ADMINISTRATION DATE)
     Route: 041
     Dates: start: 20200130, end: 20200130
  4. INVESTIGATIONAL BIOSIMILARS [Suspect]
     Active Substance: INVESTIGATIONAL BIOSIMILARS
     Dosage: 330 MG, QD (EVERY ADMINISTRATION DATE)
     Route: 041
     Dates: start: 20200220, end: 20200220
  5. INVESTIGATIONAL BIOSIMILARS [Suspect]
     Active Substance: INVESTIGATIONAL BIOSIMILARS
     Dosage: 330 MG, QD (EVERY ADMINISTRATION DATE)
     Route: 041
     Dates: start: 20200312, end: 20200312
  6. INVESTIGATIONAL BIOSIMILARS [Suspect]
     Active Substance: INVESTIGATIONAL BIOSIMILARS
     Dosage: 330 MG, QD (EVERY ADMINISTRATION DATE)
     Route: 041
     Dates: start: 20200402, end: 20200402
  7. INVESTIGATIONAL BIOSIMILARS [Suspect]
     Active Substance: INVESTIGATIONAL BIOSIMILARS
     Dosage: 330 MG, QD (EVERY ADMINISTRATION DATE)
     Route: 041
     Dates: start: 20200423, end: 20200423
  8. INVESTIGATIONAL BIOSIMILARS [Suspect]
     Active Substance: INVESTIGATIONAL BIOSIMILARS
     Dosage: 330 MG, QD (EVERY ADMINISTRATION DATE)
     Route: 041
     Dates: start: 20200514, end: 20200514
  9. OXALIPLATIN [Suspect]
     Active Substance: OXALIPLATIN
     Indication: HER2 positive gastric cancer
     Dosage: 120 MG, QD
     Route: 041
     Dates: start: 20191218
  10. OXALIPLATIN [Suspect]
     Active Substance: OXALIPLATIN
     Dosage: 120 MG, QD
     Route: 041
     Dates: start: 20200109
  11. OXALIPLATIN [Suspect]
     Active Substance: OXALIPLATIN
     Dosage: 120 MG, QD
     Route: 041
     Dates: start: 20200130
  12. OXALIPLATIN [Suspect]
     Active Substance: OXALIPLATIN
     Dosage: 120 MG, QD
     Route: 041
     Dates: start: 20200220
  13. OXALIPLATIN [Suspect]
     Active Substance: OXALIPLATIN
     Dosage: 120 MG, QD
     Route: 041
     Dates: start: 20200312
  14. OXALIPLATIN [Suspect]
     Active Substance: OXALIPLATIN
     Dosage: 120 MG, QD
     Route: 041
     Dates: start: 20200402
  15. OXALIPLATIN [Suspect]
     Active Substance: OXALIPLATIN
     Dosage: 120 MG, QD
     Route: 041
     Dates: start: 20200423
  16. OXALIPLATIN [Suspect]
     Active Substance: OXALIPLATIN
     Dosage: 120 MG, QD
     Route: 041
     Dates: start: 20200514
  17. TS-1 [Suspect]
     Active Substance: GIMERACIL\OTERACIL\TEGAFUR
     Indication: HER2 positive gastric cancer
     Dosage: 120 MILLIGRAM, QD
     Route: 048
     Dates: start: 20191218, end: 20200101
  18. TS-1 [Suspect]
     Active Substance: GIMERACIL\OTERACIL\TEGAFUR
     Dosage: 120 MILLIGRAM, QD
     Route: 048
     Dates: start: 20200109, end: 20200123
  19. TS-1 [Suspect]
     Active Substance: GIMERACIL\OTERACIL\TEGAFUR
     Dosage: 120 MILLIGRAM, QD
     Route: 048
     Dates: start: 20200130, end: 20200213
  20. TS-1 [Suspect]
     Active Substance: GIMERACIL\OTERACIL\TEGAFUR
     Dosage: 120 MILLIGRAM, QD
     Route: 048
     Dates: start: 20200220, end: 20200305
  21. TS-1 [Suspect]
     Active Substance: GIMERACIL\OTERACIL\TEGAFUR
     Dosage: 120 MILLIGRAM, QD
     Route: 048
     Dates: start: 20200312, end: 20200326
  22. TS-1 [Suspect]
     Active Substance: GIMERACIL\OTERACIL\TEGAFUR
     Dosage: 120 MILLIGRAM, QD
     Route: 048
     Dates: start: 20200402, end: 20200416
  23. TS-1 [Suspect]
     Active Substance: GIMERACIL\OTERACIL\TEGAFUR
     Dosage: 120 MILLIGRAM, QD
     Route: 048
     Dates: start: 20200423, end: 20200507
  24. TS-1 [Suspect]
     Active Substance: GIMERACIL\OTERACIL\TEGAFUR
     Dosage: 120 MILLIGRAM, QD
     Route: 048
     Dates: start: 20200514, end: 20200528
  25. HEPARIN CALCIUM [Concomitant]
     Active Substance: HEPARIN CALCIUM
     Indication: Cerebral infarction
     Dosage: UNK
     Dates: start: 20191204, end: 20200901
  26. MAGNESIUM OXIDE [Concomitant]
     Active Substance: MAGNESIUM OXIDE
     Indication: Constipation
     Dosage: UNK
     Dates: end: 20200714
  27. LANSOPRAZOLE [Concomitant]
     Active Substance: LANSOPRAZOLE
     Indication: Gastrooesophageal reflux disease
     Dosage: UNK
     Dates: end: 20200901
  28. CRESTOR [Concomitant]
     Active Substance: ROSUVASTATIN CALCIUM
     Indication: Hyperlipidaemia
     Dosage: UNK
     Dates: end: 20200122
  29. MOSAPRIDE CITRATE DIHYDRATE [Concomitant]
     Active Substance: MOSAPRIDE CITRATE DIHYDRATE
     Indication: Prophylaxis
     Dosage: UNK
     Dates: start: 20200402, end: 20200610
  30. DOMPERIDONE [Concomitant]
     Active Substance: DOMPERIDONE
     Indication: Prophylaxis of nausea and vomiting
     Dosage: UNK
     Dates: start: 20200402, end: 20200610

REACTIONS (4)
  - Death [Fatal]
  - Gastrointestinal motility disorder [Recovering/Resolving]
  - Abdominal discomfort [Recovering/Resolving]
  - Overdose [Unknown]

NARRATIVE: CASE EVENT DATE: 20200109
